FAERS Safety Report 15977545 (Version 3)
Quarter: 2019Q3

REPORT INFORMATION
  Report Type: Report from Study
  Country: US (occurrence: US)
  Receive Date: 20190218
  Receipt Date: 20190808
  Transmission Date: 20191004
  Serious: Yes (Death, Hospitalization)
  Sender: FDA-Public Use
  Company Number: US-TAKEDA-2019TUS006953

PATIENT
  Sex: Male

DRUGS (2)
  1. PONATINIB [Suspect]
     Active Substance: PONATINIB
     Indication: CHRONIC MYELOID LEUKAEMIA RECURRENT
     Dosage: 45 MILLIGRAM, QD
     Route: 048
     Dates: start: 20190206
  2. PONATINIB [Suspect]
     Active Substance: PONATINIB
     Dosage: 30 MILLIGRAM, QD
     Route: 048

REACTIONS (12)
  - Platelet count decreased [Unknown]
  - Tachypnoea [Unknown]
  - Hyponatraemia [Unknown]
  - Death [Fatal]
  - Back pain [Unknown]
  - Neuralgia [Unknown]
  - Physical deconditioning [Unknown]
  - Dyspnoea [Unknown]
  - Decreased appetite [Unknown]
  - Tachycardia [Unknown]
  - Wheezing [Unknown]
  - Fatigue [Unknown]
